FAERS Safety Report 4417147-6 (Version None)
Quarter: 2004Q3

REPORT INFORMATION
  Report Type: 
  Country: None (occurrence: None)
  Receive Date: 20040806
  Receipt Date: 20040331
  Transmission Date: 20050211
  Serious: Yes (Other)
  Sender: FDA-Public Use
  Company Number: GB-MERCK-0403GBR00319

PATIENT
  Age: 72 Year
  Sex: Male
  Weight: 62 kg

DRUGS (7)
  1. FOSAMAX [Suspect]
     Indication: OSTEOPOROSIS
     Route: 048
     Dates: start: 20040315, end: 20040326
  2. ALUMINUM HYDROXIDE AND MAGNESIUM CARBONATE [Concomitant]
     Route: 065
     Dates: start: 19950524
  3. ASPIRIN [Concomitant]
     Route: 065
     Dates: start: 20021023
  4. FUROSEMIDE [Concomitant]
     Route: 065
     Dates: start: 20031217
  5. OMEPRAZOLE [Concomitant]
     Route: 065
     Dates: start: 20040322
  6. PERINDOPRIL [Concomitant]
     Route: 065
     Dates: start: 20000201
  7. PREDNISOLONE [Concomitant]
     Route: 065
     Dates: start: 20040303

REACTIONS (1)
  - TETANY [None]
